FAERS Safety Report 19426570 (Version 1)
Quarter: 2021Q2

REPORT INFORMATION
  Report Type: Spontaneous
  Country: IT (occurrence: IT)
  Receive Date: 20210616
  Receipt Date: 20210616
  Transmission Date: 20210717
  Serious: Yes (Life-Threatening, Hospitalization)
  Sender: FDA-Public Use
  Company Number: IT-MYLANLABS-2021M1035224

PATIENT
  Age: 13 Month
  Sex: Male

DRUGS (5)
  1. SALINE                             /00075401/ [Concomitant]
     Active Substance: SODIUM CHLORIDE
     Indication: CONGENITAL MELANOCYTIC NAEVUS
     Dosage: 30 CC
     Route: 065
  2. EPINEPHRINE. [Suspect]
     Active Substance: EPINEPHRINE
     Indication: CARDIOPULMONARY FAILURE
     Dosage: 0.5 MILLILITER, 0.5ML (1:10,000)
     Route: 065
  3. HYDROGEN PEROXIDE. [Concomitant]
     Active Substance: HYDROGEN PEROXIDE
     Indication: CONGENITAL MELANOCYTIC NAEVUS
     Dosage: APPROXIMATELY 8?9 CC OF HYDROGEN PEROXIDE, WAS INJECTED UNDER PRESSURE
     Route: 023
  4. SODIUM BICARBONATE. [Suspect]
     Active Substance: SODIUM BICARBONATE
     Indication: CARDIOPULMONARY FAILURE
     Dosage: 5 MGEQ
     Route: 042
  5. FLEBOCORTID [Suspect]
     Active Substance: HYDROCORTISONE SODIUM SUCCINATE
     Indication: CARDIOPULMONARY FAILURE
     Dosage: 200 MILLIGRAM
     Route: 065

REACTIONS (1)
  - Drug ineffective [Unknown]
